FAERS Safety Report 15319426 (Version 1)
Quarter: 2018Q3

REPORT INFORMATION
  Report Type: Report from Study
  Country: None (occurrence: US)
  Receive Date: 20180827
  Receipt Date: 20180827
  Transmission Date: 20181010
  Serious: Yes (Other)
  Sender: FDA-Public Use
  Company Number: US-ABBVIE-17K-163-2198194-00

PATIENT
  Age: 56 Year
  Sex: Male

DRUGS (1)
  1. HUMIRA [Suspect]
     Active Substance: ADALIMUMAB
     Indication: CROHN^S DISEASE
     Route: 058
     Dates: start: 20171103, end: 2018

REACTIONS (11)
  - Haematuria [Not Recovered/Not Resolved]
  - Rectal discharge [Unknown]
  - Crohn^s disease [Recovering/Resolving]
  - Eye infection [Unknown]
  - Sinusitis [Recovered/Resolved]
  - Ear infection [Unknown]
  - Frequent bowel movements [Unknown]
  - Influenza [Recovering/Resolving]
  - Erythema [Recovering/Resolving]
  - Bladder neoplasm [Unknown]
  - Skin irritation [Not Recovered/Not Resolved]

NARRATIVE: CASE EVENT DATE: 2017
